FAERS Safety Report 10249562 (Version 2)
Quarter: 2014Q2

REPORT INFORMATION
  Report Type: Spontaneous
  Country: FR (occurrence: FR)
  Receive Date: 20140620
  Receipt Date: 20140620
  Transmission Date: 20141212
  Serious: Yes (Hospitalization, Other)
  Sender: FDA-Public Use
  Company Number: FR-ELI_LILLY_AND_COMPANY-FR201404002872

PATIENT
  Age: 69 Year
  Sex: Male
  Weight: 62 kg

DRUGS (8)
  1. ALIMTA [Suspect]
     Indication: ADENOCARCINOMA
     Dosage: 825 MG/M2, CYCLICAL
     Route: 042
     Dates: start: 20140307
  2. CARBOPLATINE [Suspect]
     Dosage: 441 MG, CYCLICAL
     Route: 042
     Dates: start: 20140307, end: 20140307
  3. DEXAMETHASONE [Concomitant]
     Indication: PREMEDICATION
     Dosage: 4 MG, BID
  4. FOLIC ACID [Concomitant]
     Indication: PREMEDICATION
  5. VITAMIN B12                        /00056201/ [Concomitant]
     Indication: PREMEDICATION
     Dosage: 1 DF, EVERY 9 WEEKS
     Route: 030
  6. ONDANSETRON [Concomitant]
     Dosage: 8 MG, UNKNOWN
     Route: 042
     Dates: start: 20140307, end: 20140307
  7. PLITICAN [Concomitant]
     Dosage: UNK
     Route: 042
     Dates: start: 20140307, end: 20140307
  8. SOLUMEDROL [Concomitant]
     Dosage: 80 MG, UNKNOWN
     Route: 042
     Dates: start: 20140307, end: 20140307

REACTIONS (3)
  - Purpura [Recovered/Resolved]
  - Thrombocytopenia [Recovered/Resolved]
  - Off label use [Unknown]
